FAERS Safety Report 5333072-0 (Version None)
Quarter: 2007Q1

REPORT INFORMATION
  Report Type: 
  Country: None (occurrence: None)
  Receive Date: 20070306
  Receipt Date: 20060914
  Transmission Date: 20070707
  Serious: Yes (Hospitalization)
  Sender: FDA-Public Use
  Company Number: A03200605728

PATIENT
  Age: 59 Year
  Sex: Female
  Weight: 81.63 kg

DRUGS (7)
  1. PLAVIX [Suspect]
     Indication: ARTERIAL STENT INSERTION
     Dosage: 75 MG QD - ORAL
     Route: 048
  2. SALMETEROL + FLUTICASONE [Concomitant]
  3. AEROSOL [Concomitant]
  4. FLUTICASONE PROPIONATE [Concomitant]
  5. ALBUTEROL [Concomitant]
  6. VITAMIN CAP [Concomitant]
  7. VITAMIN E [Concomitant]

REACTIONS (7)
  - ECZEMA [None]
  - EPISTAXIS [None]
  - EYE DISCHARGE [None]
  - INCREASED TENDENCY TO BRUISE [None]
  - OCULAR HYPERAEMIA [None]
  - REFLUX OESOPHAGITIS [None]
  - VERTIGO [None]
